FAERS Safety Report 4985988-2 (Version None)
Quarter: 2006Q2

REPORT INFORMATION
  Report Type: 
  Country: None (occurrence: None)
  Receive Date: 20060428
  Receipt Date: 20060420
  Transmission Date: 20061013
  Serious: Yes (Hospitalization)
  Sender: FDA-Public Use
  Company Number: ES-GILEAD-2006-0009481

PATIENT
  Sex: Female

DRUGS (4)
  1. TRUVADA [Suspect]
  2. VIREAD [Suspect]
  3. EFAVIRENZ [Concomitant]
  4. 3TC [Concomitant]

REACTIONS (5)
  - ABDOMINAL PAIN [None]
  - DIARRHOEA [None]
  - NAUSEA [None]
  - VOMITING [None]
  - WEIGHT DECREASED [None]
